FAERS Safety Report 14603681 (Version 3)
Quarter: 2018Q2

REPORT INFORMATION
  Report Type: Report from Study
  Country: None (occurrence: CA)
  Receive Date: 20180306
  Receipt Date: 20180426
  Transmission Date: 20180711
  Serious: Yes (Other)
  Sender: FDA-Public Use
  Company Number: CA-ABBVIE-18K-028-2277378-00

PATIENT
  Age: 66 Year
  Sex: Female

DRUGS (1)
  1. HUMIRA [Suspect]
     Active Substance: ADALIMUMAB
     Indication: CROHN^S DISEASE
     Route: 058
     Dates: start: 20160215

REACTIONS (5)
  - Anaemia [Not Recovered/Not Resolved]
  - Procedural pain [Unknown]
  - Small intestine polyp [Recovering/Resolving]
  - Abdominal discomfort [Not Recovered/Not Resolved]
  - Abscess [Unknown]

NARRATIVE: CASE EVENT DATE: 201802
